FAERS Safety Report 25643286 (Version 1)
Quarter: 2025Q3

REPORT INFORMATION
  Report Type: Spontaneous
  Country: AU (occurrence: AU)
  Receive Date: 20250805
  Receipt Date: 20250805
  Transmission Date: 20251020
  Serious: Yes (Other)
  Sender: ACCORD
  Company Number: None

PATIENT
  Age: 78 Year
  Sex: Male

DRUGS (3)
  1. PACLITAXEL [Suspect]
     Active Substance: PACLITAXEL
     Indication: Product used for unknown indication
  2. DEXAMETHASONE [Concomitant]
     Active Substance: DEXAMETHASONE
  3. LORATADINE [Concomitant]
     Active Substance: LORATADINE

REACTIONS (4)
  - Atrial fibrillation [Unknown]
  - Hallucination [Unknown]
  - Loss of consciousness [Unknown]
  - Nausea [Unknown]
